FAERS Safety Report 21023941 (Version 2)
Quarter: 2022Q3

REPORT INFORMATION
  Report Type: Spontaneous
  Country: DE (occurrence: DE)
  Receive Date: 20220629
  Receipt Date: 20220812
  Transmission Date: 20221027
  Serious: Yes (Other)
  Sender: FDA-Public Use
  Company Number: DE-TEVA-2022-DE-2048889

PATIENT
  Age: 31 Year
  Sex: Male

DRUGS (1)
  1. COPAXONE [Suspect]
     Active Substance: GLATIRAMER ACETATE
     Indication: Product used for unknown indication
     Dosage: FORM STRENGTH AND UNIT DOSE: UNKNOWN
     Route: 065
     Dates: start: 2019

REACTIONS (3)
  - Magnetic resonance imaging abnormal [Unknown]
  - Rash macular [Unknown]
  - Tension headache [Unknown]

NARRATIVE: CASE EVENT DATE: 20210101
